FAERS Safety Report 8916956 (Version 2)
Quarter: 2013Q1

REPORT INFORMATION
  Report Type: Report from Study
  Country: US (occurrence: US)
  Receive Date: 20121120
  Receipt Date: 20130314
  Transmission Date: 20140127
  Serious: Yes (Hospitalization)
  Sender: FDA-Public Use
  Company Number: US-BRISTOL-MYERS SQUIBB COMPANY-17115452

PATIENT
  Age: 58 Year
  Sex: Female
  Weight: 76.3 kg

DRUGS (4)
  1. SPRYCEL [Suspect]
     Indication: ACUTE LYMPHOCYTIC LEUKAEMIA
     Dosage: RECENT DOSE ON 02AUG2012,?TOTAL COURSE:5
     Route: 048
     Dates: start: 20120727, end: 20120802
  2. CYTARABINE [Suspect]
     Indication: ACUTE LYMPHOCYTIC LEUKAEMIA
     Dosage: RECENT DOSE ON 31JUL2012,?TOTAL COURSE:5
     Route: 042
     Dates: start: 20120727, end: 20120731
  3. METHOTREXATE [Suspect]
     Indication: ACUTE LYMPHOCYTIC LEUKAEMIA
     Dosage: RECENT DOSE ON 28JUL2012,1344 MG?TOTAL COURSE:5?DOSE DELAYED FOR 1DAY
     Route: 042
     Dates: start: 20120727, end: 20120728
  4. BACTRIM DS [Suspect]

REACTIONS (1)
  - Dehydration [Recovered/Resolved]
